FAERS Safety Report 7094092-1 (Version None)
Quarter: 2010Q4

REPORT INFORMATION
  Report Type: 
  Country: None (occurrence: None)
  Receive Date: 20101109
  Receipt Date: 20101109
  Transmission Date: 20110411
  Serious: Yes (Life-Threatening, Hospitalization)
  Sender: FDA-Public Use
  Company Number: None

PATIENT
  Age: 60 Year
  Weight: 99.7913 kg

DRUGS (1)
  1. NAPROXEN SODIUM [Suspect]
     Indication: MUSCULOSKELETAL PAIN
     Dosage: 440 MG ONCE PO
     Route: 048
     Dates: start: 20101106, end: 20101106

REACTIONS (4)
  - BLOOD PRESSURE SYSTOLIC DECREASED [None]
  - FALL [None]
  - FLUSHING [None]
  - PRURITUS [None]
